FAERS Safety Report 10811952 (Version 2)
Quarter: 2015Q1

REPORT INFORMATION
  Report Type: Report from Study
  Country: AR (occurrence: AR)
  Receive Date: 20150217
  Receipt Date: 20150302
  Transmission Date: 20150721
  Serious: Yes (Other)
  Sender: FDA-Public Use
  Company Number: AR-ABBVIE-15P-007-1346220-00

PATIENT
  Age: 64 Year
  Sex: Female

DRUGS (1)
  1. ZEMPLAR [Suspect]
     Active Substance: PARICALCITOL
     Indication: HYPERPARATHYROIDISM SECONDARY
     Route: 042
     Dates: start: 20141025

REACTIONS (2)
  - Arteriovenous fistula occlusion [Recovering/Resolving]
  - Arteriovenous fistula operation [Unknown]

NARRATIVE: CASE EVENT DATE: 20150202
